FAERS Safety Report 23487680 (Version 3)
Quarter: 2024Q1

REPORT INFORMATION
  Report Type: Report from Study
  Country: BR (occurrence: BR)
  Receive Date: 20240206
  Receipt Date: 20240220
  Transmission Date: 20240410
  Serious: Yes (Other)
  Sender: FDA-Public Use
  Company Number: BR-002147023-NVSC2024BR019871

PATIENT
  Sex: Female

DRUGS (1)
  1. KISQALI [Suspect]
     Active Substance: RIBOCICLIB
     Indication: Breast cancer
     Dosage: UNK
     Route: 065

REACTIONS (3)
  - Renal impairment [Recovering/Resolving]
  - Immunodeficiency [Recovered/Resolved]
  - Cataract [Not Recovered/Not Resolved]
